FAERS Safety Report 11914067 (Version 2)
Quarter: 2016Q1

REPORT INFORMATION
  Report Type: Spontaneous
  Country: JP (occurrence: JP)
  Receive Date: 20160113
  Receipt Date: 20160217
  Transmission Date: 20160526
  Serious: Yes (Hospitalization)
  Sender: FDA-Public Use
  Company Number: JP-PFIZER INC-2016006971

PATIENT
  Age: 68 Year
  Sex: Female

DRUGS (3)
  1. LYRICA [Suspect]
     Active Substance: PREGABALIN
     Indication: BACK PAIN
     Dosage: 75 MG, 1X/DAY (AT BEDTIME)
     Route: 048
     Dates: start: 20150527
  2. LYRICA [Suspect]
     Active Substance: PREGABALIN
     Dosage: 75 MG, 2X/DAY
     Route: 048
     Dates: start: 20150729, end: 201512
  3. EDIROL [Concomitant]
     Active Substance: ELDECALCITOL
     Dosage: 0.75 UG, 1X/DAY
     Route: 048

REACTIONS (4)
  - Hypercalcaemia [Recovering/Resolving]
  - Fall [Unknown]
  - Vision blurred [Unknown]
  - Rash macular [Unknown]

NARRATIVE: CASE EVENT DATE: 201507
